FAERS Safety Report 10996359 (Version 9)
Quarter: 2018Q2

REPORT INFORMATION
  Report Type: Report from Study
  Country: CA (occurrence: CA)
  Receive Date: 20150408
  Receipt Date: 20180425
  Transmission Date: 20180711
  Serious: Yes (Other)
  Sender: FDA-Public Use
  Company Number: CA-ROCHE-1378706

PATIENT
  Age: 66 Year
  Sex: Male

DRUGS (29)
  1. FUROSEMIDE. [Concomitant]
     Active Substance: FUROSEMIDE
  2. ACETAMINOPHEN. [Concomitant]
     Active Substance: ACETAMINOPHEN
     Indication: PREMEDICATION
     Route: 048
     Dates: start: 20180406
  3. SOLU-MEDROL [Concomitant]
     Active Substance: METHYLPREDNISOLONE SODIUM SUCCINATE
     Indication: PREMEDICATION
     Route: 042
     Dates: start: 20120730
  4. PENNSAID [Concomitant]
     Active Substance: DICLOFENAC SODIUM
  5. ADVAIR HFA [Concomitant]
     Active Substance: FLUTICASONE PROPIONATE\SALMETEROL XINAFOATE
  6. NASONEX [Concomitant]
     Active Substance: MOMETASONE FUROATE
  7. CELLCEPT [Suspect]
     Active Substance: MYCOPHENOLATE MOFETIL\MYCOPHENOLATE MOFETIL HYDROCHLORIDE
     Indication: PRODUCT USED FOR UNKNOWN INDICATION
     Route: 065
  8. ALTACE [Concomitant]
     Active Substance: RAMIPRIL
  9. RITUXAN [Suspect]
     Active Substance: RITUXIMAB
     Dosage: LAST RITUXIMAB INFUSION WAS ON 22/DEC/2016
     Route: 042
     Dates: start: 20131125
  10. TYLENOL [Concomitant]
     Active Substance: ACETAMINOPHEN
     Indication: PREMEDICATION
     Route: 048
     Dates: start: 20120730, end: 20140807
  11. DIAMICRON [Concomitant]
     Active Substance: GLICLAZIDE
  12. CRESTOR [Concomitant]
     Active Substance: ROSUVASTATIN CALCIUM
  13. BRICANYL [Concomitant]
     Active Substance: TERBUTALINE SULFATE
  14. EZETROL [Concomitant]
     Active Substance: EZETIMIBE
  15. PREDNISONE. [Concomitant]
     Active Substance: PREDNISONE
  16. PANTOLOC [Concomitant]
     Active Substance: PANTOPRAZOLE SODIUM
  17. NEURONTIN [Concomitant]
     Active Substance: GABAPENTIN
  18. ATIVAN [Concomitant]
     Active Substance: LORAZEPAM
  19. RITUXAN [Suspect]
     Active Substance: RITUXIMAB
     Indication: MYOSITIS
     Dosage: FREQUENCY: DAY 1 AND 15
     Route: 042
     Dates: start: 20120730
  20. TYLENOL [Concomitant]
     Active Substance: ACETAMINOPHEN
     Route: 048
     Dates: start: 20150409, end: 20150827
  21. TYLENOL [Concomitant]
     Active Substance: ACETAMINOPHEN
     Route: 048
     Dates: start: 20151217, end: 20151217
  22. TYLENOL [Concomitant]
     Active Substance: ACETAMINOPHEN
     Route: 048
     Dates: start: 20160428
  23. ASA [Concomitant]
     Active Substance: ASPIRIN
  24. REFRESH PLUS [Concomitant]
     Active Substance: CARBOXYMETHYLCELLULOSE SODIUM
  25. METHYLPREDNISOLONE. [Concomitant]
     Active Substance: METHYLPREDNISOLONE
     Route: 042
     Dates: start: 20180406
  26. RITUXAN [Suspect]
     Active Substance: RITUXIMAB
     Route: 042
     Dates: start: 20180406
  27. VALACYCLOVIR [Suspect]
     Active Substance: VALACYCLOVIR HYDROCHLORIDE
     Indication: PRODUCT USED FOR UNKNOWN INDICATION
     Dosage: FOR 5 WEEKS
     Route: 065
  28. BENADRYL [Concomitant]
     Active Substance: DIPHENHYDRAMINE HYDROCHLORIDE
     Indication: PREMEDICATION
     Route: 048
     Dates: start: 20120730
  29. VALTREX [Concomitant]
     Active Substance: VALACYCLOVIR HYDROCHLORIDE

REACTIONS (14)
  - Pulmonary hypertension [Not Recovered/Not Resolved]
  - Lung infection [Unknown]
  - Blood pressure fluctuation [Unknown]
  - Intentional product use issue [Unknown]
  - Drug ineffective [Unknown]
  - Body temperature decreased [Unknown]
  - Off label use [Unknown]
  - Oxygen saturation decreased [Unknown]
  - Cytomegalovirus infection [Unknown]
  - Weight decreased [Unknown]
  - Cataract [Not Recovered/Not Resolved]
  - Diastolic dysfunction [Unknown]
  - Infusion related reaction [Unknown]
  - Heart rate decreased [Unknown]

NARRATIVE: CASE EVENT DATE: 201401
